FAERS Safety Report 7773566-1 (Version None)
Quarter: 2011Q3

REPORT INFORMATION
  Report Type: 
  Country: None (occurrence: None)
  Receive Date: 20110923
  Receipt Date: 20110919
  Transmission Date: 20111222
  Serious: Yes (Other)
  Sender: FDA-Public Use
  Company Number: US-CEPHALON-2010002422

PATIENT
  Sex: Female
  Weight: 75 kg

DRUGS (21)
  1. FENTANYL [Concomitant]
     Indication: FIBROMYALGIA
     Dates: start: 20080101
  2. FENTANYL [Concomitant]
     Indication: CROHN'S DISEASE
  3. DIAZEPAM [Concomitant]
  4. LYRICA [Concomitant]
     Indication: CROHN'S DISEASE
  5. FENTORA [Suspect]
     Indication: CROHN'S DISEASE
  6. TEVETEN [Concomitant]
     Indication: HYPERTENSION
     Dates: end: 20100101
  7. AMBIEN [Concomitant]
  8. PREVACID [Concomitant]
     Indication: CROHN'S DISEASE
  9. LORAZEPAM [Concomitant]
  10. ZANAFLEX [Concomitant]
     Indication: MUSCLE RELAXANT THERAPY
  11. SPRINTEC [Concomitant]
     Indication: OVARIAN CYST
  12. PHENTERMINE [Concomitant]
     Indication: WEIGHT
  13. HYDROMORPHONE HCL [Concomitant]
     Indication: CROHN'S DISEASE
  14. SOMA [Concomitant]
     Indication: MUSCLE RELAXANT THERAPY
  15. NUCYNTA [Concomitant]
  16. CRESTOR [Concomitant]
  17. HYDROMORPHONE HCL [Concomitant]
     Indication: FIBROMYALGIA
     Dates: start: 20070101
  18. SYNTHROID [Concomitant]
     Indication: THYROID DISORDER
  19. TRIAMTERENE AND HYDROCHLOROTHIAZIDE [Concomitant]
  20. FENTORA [Suspect]
     Indication: FIBROMYALGIA
     Route: 002
     Dates: start: 20060101
  21. LYRICA [Concomitant]
     Indication: FIBROMYALGIA
     Dates: start: 20071201, end: 20080130

REACTIONS (5)
  - WEIGHT INCREASED [None]
  - TOOTH FRACTURE [None]
  - GINGIVAL ULCERATION [None]
  - BONE PAIN [None]
  - MOUTH ULCERATION [None]
